FAERS Safety Report 5888407-7 (Version None)
Quarter: 2008Q3

REPORT INFORMATION
  Report Type: 
  Country: None (occurrence: None)
  Receive Date: 20080916
  Receipt Date: 20080916
  Transmission Date: 20090109
  Serious: Yes (Other)
  Sender: FDA-Public Use
  Company Number: None

PATIENT
  Age: 52 Year
  Sex: Female
  Weight: 67.586 kg

DRUGS (1)
  1. LAMOTRIGINE [Suspect]
     Indication: EPILEPSY
     Dosage: 100MG ONCE DAILY BUCCAL
     Route: 002
     Dates: start: 20080910, end: 20080915

REACTIONS (2)
  - DIZZINESS [None]
  - PHARMACEUTICAL PRODUCT COMPLAINT [None]
